FAERS Safety Report 18554891 (Version 1)
Quarter: 2020Q4

REPORT INFORMATION
  Report Type: Report from Study
  Country: US (occurrence: US)
  Receive Date: 20201127
  Receipt Date: 20201127
  Transmission Date: 20210114
  Serious: Yes (Hospitalization)
  Sender: FDA-Public Use
  Company Number: US-VERTEX PHARMACEUTICALS-2020-023271

PATIENT
  Sex: Female

DRUGS (24)
  1. HUMALOG [Concomitant]
     Active Substance: INSULIN LISPRO
  2. CLONAZEPAM. [Concomitant]
     Active Substance: CLONAZEPAM
  3. DEXTROAMPHETAMINE [DEXAMFETAMINE] [Concomitant]
     Active Substance: DEXTROAMPHETAMINE
  4. ESCITALOPRAM [Concomitant]
     Active Substance: ESCITALOPRAM OXALATE
  5. FEROSUL [Concomitant]
     Active Substance: FERROUS SULFATE
  6. OMEPRAZOLE. [Concomitant]
     Active Substance: OMEPRAZOLE
  7. MIRTAZAPINE. [Concomitant]
     Active Substance: MIRTAZAPINE
  8. ASPIRIN. [Concomitant]
     Active Substance: ASPIRIN
  9. CYCLOBENZAPRIN [Concomitant]
     Active Substance: CYCLOBENZAPRINE
  10. SULFAMETHOXAZOLE+TRIMETHOPRIM [Concomitant]
     Active Substance: SULFAMETHOXAZOLE\TRIMETHOPRIM
  11. ELIQUIS [Concomitant]
     Active Substance: APIXABAN
  12. ALBUTEROL [SALBUTAMOL] [Concomitant]
     Active Substance: ALBUTEROL
  13. AMPHETAMINE [Concomitant]
     Active Substance: AMPHETAMINE
  14. CETRIZINE [Concomitant]
     Active Substance: CETIRIZINE HYDROCHLORIDE
  15. PREGABALIN. [Concomitant]
     Active Substance: PREGABALIN
  16. METOCLOPRAM [Concomitant]
     Active Substance: METOCLOPRAMIDE
  17. ATROVENT [Concomitant]
     Active Substance: IPRATROPIUM BROMIDE
  18. BAQSIMI [Concomitant]
     Active Substance: GLUCAGON
  19. LYRICA [Concomitant]
     Active Substance: PREGABALIN
  20. TRIKAFTA [Suspect]
     Active Substance: ELEXACAFTOR\IVACAFTOR\TEZACAFTOR
     Indication: CYSTIC FIBROSIS
     Dosage: 2 TABS (ELEXA 100 MG/ TEZA 50 MG/ IVA 75 MG) AM AND 1 TAB (IVA 150 MG) PM
     Route: 048
     Dates: start: 20191231
  21. ZOLPIDEM [Concomitant]
     Active Substance: ZOLPIDEM TARTRATE
  22. LIDOCAINE. [Concomitant]
     Active Substance: LIDOCAINE
  23. LEVOFLOXACIN. [Concomitant]
     Active Substance: LEVOFLOXACIN
  24. GLUCAGON EMERGENCY KIT [Concomitant]
     Active Substance: GLUCAGON

REACTIONS (1)
  - Cystic fibrosis respiratory infection suppression [Unknown]
